FAERS Safety Report 6276415-6 (Version None)
Quarter: 2009Q3

REPORT INFORMATION
  Report Type: 
  Country: None (occurrence: None)
  Receive Date: 20090720
  Receipt Date: 20080806
  Transmission Date: 20100115
  Serious: Yes (Other)
  Sender: FDA-Public Use
  Company Number: 2008PV000059

PATIENT
  Age: 39 Year
  Sex: Female

DRUGS (2)
  1. DEPODUR [Suspect]
     Indication: PROCEDURAL PAIN
     Dosage: 15 MG;1X;ED
  2. VICODIN [Concomitant]

REACTIONS (2)
  - HYPOTENSION [None]
  - TACHYCARDIA [None]
